FAERS Safety Report 8605724-8 (Version None)
Quarter: 2012Q3

REPORT INFORMATION
  Report Type: 
  Country: None (occurrence: None)
  Receive Date: 20120820
  Receipt Date: 20120813
  Transmission Date: 20120928
  Serious: Yes (Other)
  Sender: FDA-Public Use
  Company Number: US-JNJFOC-20120210932

PATIENT
  Sex: Male
  Weight: 104.33 kg

DRUGS (15)
  1. REMICADE [Suspect]
     Indication: RHEUMATOID ARTHRITIS
     Route: 042
     Dates: start: 20110502, end: 20120521
  2. METOPROLOL TARTRATE [Concomitant]
     Indication: CARDIAC DISORDER
     Route: 048
     Dates: start: 20020101
  3. QUINAPRIL [Concomitant]
     Indication: CARDIAC DISORDER
     Route: 048
     Dates: start: 20020101
  4. FELDENE [Concomitant]
     Indication: RHEUMATOID ARTHRITIS
     Dosage: EVERY DAY
     Route: 065
     Dates: start: 20070814
  5. REMICADE [Suspect]
     Route: 042
     Dates: start: 20110601, end: 20120202
  6. REMICADE [Suspect]
     Route: 042
     Dates: start: 20120202
  7. PLAVIX [Concomitant]
     Indication: CARDIAC DISORDER
     Route: 048
     Dates: start: 20020101
  8. SIMVASTATIN [Concomitant]
     Indication: BLOOD CHOLESTEROL INCREASED
     Route: 048
     Dates: start: 20110201
  9. PREDNISONE TAB [Concomitant]
     Indication: RHEUMATOID ARTHRITIS
     Dosage: 5-25 MG DAILY
     Route: 065
     Dates: start: 20101116
  10. BENADRYL [Concomitant]
     Route: 065
  11. CLARITIN [Concomitant]
     Indication: PREMEDICATION
     Route: 065
  12. REMICADE [Suspect]
     Dosage: 100 MG/VIAL, 4 MG/KG
     Route: 042
     Dates: start: 20120329
  13. TRAMADOL HCL [Concomitant]
     Indication: PAIN MANAGEMENT
     Route: 048
     Dates: start: 20020101
  14. ACETAMINOPHEN [Concomitant]
     Indication: PREMEDICATION
     Route: 065
  15. ZANTAC [Concomitant]
     Indication: PREMEDICATION
     Route: 065

REACTIONS (5)
  - INFUSION RELATED REACTION [None]
  - DRUG INEFFECTIVE [None]
  - NEPHROLITHIASIS [None]
  - RHEUMATOID ARTHRITIS [None]
  - CHILLS [None]
